FAERS Safety Report 17848460 (Version 1)
Quarter: 2020Q2

REPORT INFORMATION
  Report Type: Spontaneous
  Country: FR (occurrence: FR)
  Receive Date: 20200602
  Receipt Date: 20200602
  Transmission Date: 20200714
  Serious: Yes (Hospitalization, Other)
  Sender: FDA-Public Use
  Company Number: FR-BRISTOL-MYERS SQUIBB COMPANY-BMS-2020-042617

PATIENT
  Age: 87 Year
  Sex: Female

DRUGS (5)
  1. PREVISCAN [FLUINDIONE] [Concomitant]
     Active Substance: FLUINDIONE
     Indication: ATRIAL FIBRILLATION
     Dosage: 1 DOSAGE FORM, PER DAY
     Route: 048
  2. BIPRETERAX N [Concomitant]
     Active Substance: INDAPAMIDE\PERINDOPRIL ARGININE
     Indication: ARRHYTHMIA
     Dosage: 1 DOSAGE FORM, QD
     Route: 048
  3. OPDIVO [Suspect]
     Active Substance: NIVOLUMAB
     Indication: MALIGNANT MELANOMA
     Dosage: 480 MILLIGRAM, CYCLICAL
     Route: 042
     Dates: start: 20200207, end: 20200513
  4. HEMIGOXINE NATIVELLE [Concomitant]
     Active Substance: DIGOXIN
     Indication: ATRIAL FIBRILLATION
     Dosage: 0.13 MILLIGRAM, QD
     Route: 048
  5. PRAVASTATINE [PRAVASTATIN] [Concomitant]
     Active Substance: PRAVASTATIN
     Indication: DYSLIPIDAEMIA
     Dosage: 20 MILLIGRAM, QD
     Route: 048

REACTIONS (1)
  - Major depression [Not Recovered/Not Resolved]

NARRATIVE: CASE EVENT DATE: 202003
